FAERS Safety Report 4511765-2 (Version None)
Quarter: 2004Q4

REPORT INFORMATION
  Report Type: 
  Country: None (occurrence: None)
  Receive Date: 20041123
  Receipt Date: 20041123
  Transmission Date: 20050328
  Serious: Yes (Other)
  Sender: FDA-Public Use
  Company Number: None

PATIENT
  Age: 44 Year
  Sex: Male
  Weight: 113.4 kg

DRUGS (3)
  1. VALPROIC ACID [Suspect]
  2. GABAPENTIN [Concomitant]
  3. BUPROPION HCL [Concomitant]

REACTIONS (1)
  - NAUSEA [None]
